FAERS Safety Report 12059418 (Version 1)
Quarter: 2016Q1

REPORT INFORMATION
  Report Type: Spontaneous
  Country: US (occurrence: None)
  Receive Date: 20160209
  Receipt Date: 20160209
  Transmission Date: 20160526
  Serious: Yes (Hospitalization, Disabling)
  Sender: FDA-Public Use
  Company Number: None

PATIENT
  Age: 43 Year
  Sex: Male
  Weight: 97.52 kg

DRUGS (1)
  1. NEUPOGEN [Suspect]
     Active Substance: FILGRASTIM
     Indication: DRUG THERAPY
     Dosage: DAILY SHOTS ONCE DAILY INTO THE MUSCLE
     Route: 030

REACTIONS (4)
  - Fatigue [None]
  - Pain [None]
  - Visual impairment [None]
  - Multiple sclerosis [None]

NARRATIVE: CASE EVENT DATE: 20150524
